FAERS Safety Report 10141851 (Version 3)
Quarter: 2014Q2

REPORT INFORMATION
  Report Type: Report from Study
  Country: US (occurrence: US)
  Receive Date: 20140429
  Receipt Date: 20140519
  Transmission Date: 20141212
  Serious: Yes (Other)
  Sender: FDA-Public Use
  Company Number: US-BAYER-2014-060306

PATIENT
  Age: 60 Year
  Sex: Male

DRUGS (1)
  1. NEXAVAR [Suspect]
     Indication: HEPATIC CANCER
     Dosage: FREQUENCY: 2 TABLETS TWICE A DAY
     Route: 048
     Dates: start: 20140409, end: 20140412

REACTIONS (5)
  - Abdominal discomfort [Recovered/Resolved]
  - Vomiting [Recovered/Resolved]
  - Aphagia [Recovered/Resolved]
  - Diarrhoea [None]
  - Vomiting [Recovered/Resolved]
